FAERS Safety Report 7919682-2 (Version None)
Quarter: 2011Q4

REPORT INFORMATION
  Report Type: 
  Country: None (occurrence: None)
  Receive Date: 20111117
  Receipt Date: 20111108
  Transmission Date: 20120403
  Serious: Yes (Other)
  Sender: FDA-Public Use
  Company Number: US-US-EMD SERONO, INC.-7094862

PATIENT
  Sex: Female

DRUGS (3)
  1. SOLU-MEDROL [Concomitant]
     Route: 042
  2. REBIF [Suspect]
     Indication: MULTIPLE SCLEROSIS
     Route: 058
     Dates: start: 20110817
  3. REBIF [Suspect]
     Route: 058

REACTIONS (5)
  - ABSCESS [None]
  - VAGINAL HAEMORRHAGE [None]
  - MALAISE [None]
  - MUSCLE SPASMS [None]
  - HANGOVER [None]
